FAERS Safety Report 22315280 (Version 1)
Quarter: 2023Q2

REPORT INFORMATION
  Report Type: Spontaneous
  Country: US (occurrence: None)
  Receive Date: 20230511
  Receipt Date: 20230511
  Transmission Date: 20230722
  Serious: Yes (Hospitalization, Other)
  Sender: FDA-Public Use
  Company Number: None

PATIENT
  Age: 69 Year
  Sex: Female
  Weight: 63.9 kg

DRUGS (7)
  1. KETOROLAC TROMETHAMINE [Suspect]
     Active Substance: KETOROLAC TROMETHAMINE
     Dosage: OTHER QUANTITY : 1 DROP(S);?FREQUENCY : 4 TIMES A DAY;?
     Route: 047
     Dates: start: 20230320, end: 20230417
  2. AMLIPODINE [Concomitant]
  3. ZRYREC [Concomitant]
  4. ALLEGRA [Concomitant]
     Active Substance: FEXOFENADINE HYDROCHLORIDE
  5. VITAMIN B12 [Concomitant]
     Active Substance: CYANOCOBALAMIN
  6. FOLIC ACID [Concomitant]
     Active Substance: FOLIC ACID
  7. SERMORELIN [Concomitant]
     Active Substance: SERMORELIN

REACTIONS (5)
  - Abdominal pain [None]
  - Nausea [None]
  - Abdominal distension [None]
  - Dysgeusia [None]
  - Salivary hypersecretion [None]

NARRATIVE: CASE EVENT DATE: 20230425
